FAERS Safety Report 4458057-8 (Version None)
Quarter: 2004Q3

REPORT INFORMATION
  Report Type: 
  Country: None (occurrence: None)
  Receive Date: 20040922
  Receipt Date: 20040908
  Transmission Date: 20050211
  Serious: Yes (Hospitalization)
  Sender: FDA-Public Use
  Company Number: A01200404339

PATIENT
  Age: 33 Year
  Sex: Male

DRUGS (9)
  1. ZOLPIDEM TARTRATE [Suspect]
  2. DEPAS - (ETIZOLAM) - UNKNOWN - UNIT DOSE : UNKNOWN [Suspect]
  3. RITALIN [Suspect]
  4. AKINETON - (BIPERIDEN HYDROCHLORIDE) - UNKNOWN -  UNIT DOSE : UNKNOWN [Suspect]
  5. (NIMETAZEPAM) - UNKNOWN - UNIT DOSE : UNKNOWN [Suspect]
  6. WINTERMIN - (CHLORPROMAZINE HYDROCHLORIDE) - UNKNOWN - UNIT DOSE : UNK [Suspect]
  7. TEGRETOL [Suspect]
  8. RISPERDAL [Suspect]
  9. SERENZIN - (DIAZEPAM) - UNKNOWN - UNIT DOSE : UNKNOWN [Suspect]

REACTIONS (3)
  - PO2 INCREASED [None]
  - PRIAPISM [None]
  - SURGICAL PROCEDURE REPEATED [None]
